FAERS Safety Report 9668595 (Version 1)
Quarter: 2013Q4

REPORT INFORMATION
  Report Type: Spontaneous
  Country: US (occurrence: US)
  Receive Date: 20131105
  Receipt Date: 20131105
  Transmission Date: 20140711
  Serious: No
  Sender: FDA-Public Use
  Company Number: US-009507513-1311USA000631

PATIENT
  Age: 85 Year
  Sex: Female

DRUGS (2)
  1. DULERA [Suspect]
     Indication: LUNG DISORDER
     Dosage: 2 PUFFS TWICE DAILY
     Route: 055
     Dates: start: 2013
  2. ALBUTEROL SULFATE [Concomitant]

REACTIONS (2)
  - Glossodynia [Recovering/Resolving]
  - Product quality issue [Unknown]
